FAERS Safety Report 16990581 (Version 2)
Quarter: 2019Q4

REPORT INFORMATION
  Report Type: Spontaneous
  Country: CN (occurrence: CN)
  Receive Date: 20191104
  Receipt Date: 20191130
  Transmission Date: 20200122
  Serious: Yes (Other)
  Sender: FDA-Public Use
  Company Number: CN-UCBSA-2019045268

PATIENT

DRUGS (2)
  1. KEPPRA [Suspect]
     Active Substance: LEVETIRACETAM
     Indication: LENNOX-GASTAUT SYNDROME
     Dosage: INITIAL DOSE OF 10 MG/KG/DAY, BID, SECOND WEEK, THE DOSE 5-10 MG/KG/DAY PER WEEK FOR 4-8 WEEKS
     Route: 048
  2. KEPPRA [Suspect]
     Active Substance: LEVETIRACETAM
     Indication: OFF LABEL USE

REACTIONS (13)
  - Fatigue [Unknown]
  - Oedema [Unknown]
  - Poor quality sleep [Unknown]
  - Off label use [Unknown]
  - Decreased appetite [Unknown]
  - Drug ineffective [Unknown]
  - Seizure [Unknown]
  - Urinary incontinence [Unknown]
  - Psychomotor hyperactivity [Unknown]
  - Somnolence [Unknown]
  - Vomiting [Unknown]
  - Rash [Unknown]
  - Hepatic enzyme increased [Unknown]
